FAERS Safety Report 8481493-X (Version None)
Quarter: 2012Q3

REPORT INFORMATION
  Report Type: 
  Country: None (occurrence: None)
  Receive Date: 20120702
  Receipt Date: 20120619
  Transmission Date: 20120928
  Serious: Yes (Hospitalization, Other)
  Sender: FDA-Public Use
  Company Number: JP-VERTEX PHARMACEUTICALS INC.-AE-2012-009244

PATIENT
  Age: 67 Year
  Sex: Female

DRUGS (18)
  1. HUSCODE [Concomitant]
     Route: 048
     Dates: start: 20120503, end: 20120503
  2. TELAVIC (TELAPREVIR) [Suspect]
     Route: 048
     Dates: start: 20120606
  3. MENTAX [Concomitant]
     Route: 061
     Dates: start: 20120503
  4. PEGINTERFERON ALFA-2B [Concomitant]
     Route: 058
     Dates: start: 20120502, end: 20120509
  5. TELAVIC (TELAPREVIR) [Suspect]
     Indication: HEPATITIS C
     Route: 048
     Dates: start: 20120502, end: 20120606
  6. PEGINTERFERON ALFA-2B [Concomitant]
     Route: 058
     Dates: start: 20120516, end: 20120516
  7. TALION OD [Concomitant]
     Route: 048
  8. GLAKAY [Concomitant]
     Route: 048
  9. RIBAVIRIN [Concomitant]
     Route: 048
     Dates: start: 20120525, end: 20120606
  10. RIBAVIRIN [Concomitant]
     Route: 048
     Dates: start: 20120606
  11. PEGINTERFERON ALFA-2B [Concomitant]
     Route: 058
     Dates: start: 20120523
  12. DETOMEFAN [Concomitant]
     Route: 048
     Dates: start: 20120503, end: 20120510
  13. MENTAX [Concomitant]
     Dates: start: 20120503, end: 20120503
  14. JUVELA N [Concomitant]
     Route: 048
  15. MARZULENE-S [Concomitant]
     Route: 048
     Dates: start: 20120501
  16. VOLTAREN-XR [Concomitant]
     Route: 048
     Dates: start: 20120501
  17. RIBAVIRIN [Concomitant]
     Indication: HEPATITIS C
     Route: 048
     Dates: start: 20120502, end: 20120524
  18. URSO 250 [Concomitant]

REACTIONS (2)
  - SKIN DISORDER [None]
  - HAEMOGLOBIN DECREASED [None]
